FAERS Safety Report 9126589 (Version 2)
Quarter: 2018Q3

REPORT INFORMATION
  Report Type: Report from Study
  Country: IT (occurrence: IT)
  Receive Date: 20130117
  Receipt Date: 20180820
  Transmission Date: 20181010
  Serious: Yes (Hospitalization, Other)
  Sender: FDA-Public Use
  Company Number: IT-PFIZER INC-2013016092

PATIENT
  Age: 62 Year
  Sex: Male
  Weight: 83 kg

DRUGS (8)
  1. TESTOSTERONE. [Concomitant]
     Active Substance: TESTOSTERONE
     Indication: FOLLICLE STIMULATING HORMONE DEFICIENCY
     Dosage: 50 MG, 1X/DAY
     Route: 058
     Dates: start: 20090925, end: 20130110
  2. SOMAVERT [Suspect]
     Active Substance: PEGVISOMANT
     Indication: ACROMEGALY
     Dosage: 10 MG DAILY, 7 INJECTIONS PER WEEK
     Route: 058
     Dates: start: 20101001, end: 20130110
  3. URSODEOXYCHOLIC ACID [Concomitant]
     Active Substance: URSODIOL
     Dosage: 450 MG, 1X/DAY
     Route: 048
     Dates: start: 2009
  4. IPSTYL [Suspect]
     Active Substance: LANREOTIDE ACETATE
     Indication: ACROMEGALY
     Dosage: 120 MG, MONTHLY
     Route: 030
     Dates: start: 20110606, end: 20130110
  5. TESTOSTERONE. [Concomitant]
     Active Substance: TESTOSTERONE
     Indication: LUTEINISING HORMONE DEFICIENCY
  6. TESTOSTERONE. [Concomitant]
     Active Substance: TESTOSTERONE
     Indication: SECONDARY HYPOGONADISM
  7. EUTIROX [Concomitant]
     Active Substance: LEVOTHYROXINE SODIUM
     Indication: BLOOD THYROID STIMULATING HORMONE DECREASED
     Dosage: 125 MG, DAILY
     Route: 048
     Dates: start: 20110506, end: 20130110
  8. EUTIROX [Concomitant]
     Active Substance: LEVOTHYROXINE SODIUM
     Indication: HYPERTHYROIDISM

REACTIONS (2)
  - Growth hormone-producing pituitary tumour [Recovering/Resolving]
  - Disease progression [Recovering/Resolving]

NARRATIVE: CASE EVENT DATE: 20130109
